FAERS Safety Report 24413449 (Version 1)
Quarter: 2024Q4

REPORT INFORMATION
  Report Type: Spontaneous
  Country: US (occurrence: US)
  Receive Date: 20241008
  Receipt Date: 20241008
  Transmission Date: 20250115
  Serious: Yes (Hospitalization, Other)
  Sender: PFIZER
  Company Number: US-PFIZER INC-PV202400129515

PATIENT
  Age: 6 Year
  Sex: Female

DRUGS (1)
  1. XELJANZ [Suspect]
     Active Substance: TOFACITINIB CITRATE
     Dosage: UNK

REACTIONS (8)
  - Pulmonary hypertension [Unknown]
  - Respiratory failure [Unknown]
  - Haemophagocytic lymphohistiocytosis [Recovered/Resolved]
  - Still^s disease [Unknown]
  - Interstitial lung disease [Unknown]
  - Condition aggravated [Unknown]
  - Viral infection [Unknown]
  - Inflammation [Unknown]

NARRATIVE: CASE EVENT DATE: 20240606
